FAERS Safety Report 4471068-1 (Version None)
Quarter: 2004Q4

REPORT INFORMATION
  Report Type: 
  Country: None (occurrence: None)
  Receive Date: 20041011
  Receipt Date: 20041001
  Transmission Date: 20050328
  Serious: Yes (Death)
  Sender: FDA-Public Use
  Company Number: US-JNJFOC-20041001253

PATIENT

DRUGS (2)
  1. REMICADE [Suspect]
     Indication: CROHN'S DISEASE
     Route: 042
  2. MULTIPLE CONCOMITANT MEDICATIONS [Concomitant]

REACTIONS (1)
  - PNEUMOCYSTIS CARINII INFECTION [None]
